FAERS Safety Report 7296273-0 (Version None)
Quarter: 2011Q1

REPORT INFORMATION
  Report Type: 
  Country: None (occurrence: None)
  Receive Date: 20110216
  Receipt Date: 20110214
  Transmission Date: 20110831
  Serious: Yes (Other)
  Sender: FDA-Public Use
  Company Number: US-JNJCH-2011003919

PATIENT
  Age: 49 Year
  Sex: Male
  Weight: 99.8 kg

DRUGS (1)
  1. BENADRYL [Suspect]
     Indication: EUPHORIC MOOD
     Route: 048

REACTIONS (3)
  - DRUG ABUSE [None]
  - DEPENDENCE [None]
  - OVERDOSE [None]
